FAERS Safety Report 15976634 (Version 3)
Quarter: 2019Q1

REPORT INFORMATION
  Report Type: Spontaneous
  Country: HR (occurrence: HR)
  Receive Date: 20190218
  Receipt Date: 20190307
  Transmission Date: 20190418
  Serious: Yes (Death, Hospitalization)
  Sender: FDA-Public Use
  Company Number: HR-ACTELION-A-CH2019-186503

PATIENT
  Age: 61 Year
  Sex: Female

DRUGS (3)
  1. OPSUMIT [Suspect]
     Active Substance: MACITENTAN
     Indication: PULMONARY HYPERTENSION
     Dosage: 10 MG, QD
     Route: 048
     Dates: start: 201512
  2. OXYGEN. [Concomitant]
     Active Substance: OXYGEN
  3. CYCLOSPORIN [Concomitant]
     Active Substance: CYCLOSPORINE

REACTIONS (3)
  - Death [Fatal]
  - Systemic scleroderma [Unknown]
  - Concomitant disease aggravated [Unknown]

NARRATIVE: CASE EVENT DATE: 201804
